FAERS Safety Report 5671193-3 (Version None)
Quarter: 2008Q1

REPORT INFORMATION
  Report Type: 
  Country: None (occurrence: None)
  Receive Date: 20080318
  Receipt Date: 20080307
  Transmission Date: 20080703
  Serious: Yes (Other)
  Sender: FDA-Public Use
  Company Number: US-ELI_LILLY_AND_COMPANY-US200803002107

PATIENT
  Age: 11 Year
  Sex: Male

DRUGS (2)
  1. STRATTERA [Suspect]
     Dosage: 60 MG, UNK
     Dates: start: 20080125, end: 20080302
  2. STRATTERA [Suspect]
     Dosage: 40 MG, UNK
     Dates: start: 20080304

REACTIONS (2)
  - CHEST PAIN [None]
  - DYSGEUSIA [None]
